FAERS Safety Report 9419589 (Version 1)
Quarter: 2013Q3

REPORT INFORMATION
  Report Type: Spontaneous
  Country: FR (occurrence: FR)
  Receive Date: 20130725
  Receipt Date: 20130725
  Transmission Date: 20140515
  Serious: Yes (Other)
  Sender: FDA-Public Use
  Company Number: FR-PFIZER INC-2013211248

PATIENT
  Age: 66 Year
  Sex: Female

DRUGS (1)
  1. AROMASINE [Suspect]
     Indication: BREAST CANCER
     Dosage: 25 MG, 1X/DAY
     Route: 048
     Dates: start: 20130520, end: 20130528

REACTIONS (1)
  - Tinnitus [Recovered/Resolved]
